FAERS Safety Report 18654028 (Version 1)
Quarter: 2020Q4

REPORT INFORMATION
  Report Type: Spontaneous
  Country: US (occurrence: US)
  Receive Date: 20201223
  Receipt Date: 20201223
  Transmission Date: 20210114
  Serious: Yes (Life-Threatening, Hospitalization)
  Sender: FDA-Public Use
  Company Number: US-ADAREPHARM-2020-US-000119

PATIENT
  Age: 65 Year
  Sex: Male

DRUGS (2)
  1. KCL [Suspect]
     Active Substance: POTASSIUM CHLORIDE
     Indication: CARDIAC FAILURE
     Dosage: 60 MEQ
  2. NU-SALT [Suspect]
     Active Substance: POTASSIUM CHLORIDE
     Indication: CARDIAC FAILURE
     Dosage: 8 TSP DAILY ON MEALS AND SELTZER WATER

REACTIONS (3)
  - Acute respiratory failure [Recovered/Resolved]
  - Hyperkalaemia [Recovered/Resolved]
  - Overdose [Recovered/Resolved]
